FAERS Safety Report 10228260 (Version 3)
Quarter: 2014Q4

REPORT INFORMATION
  Report Type: Spontaneous
  Country: US (occurrence: US)
  Receive Date: 20140610
  Receipt Date: 20141201
  Transmission Date: 20150528
  Serious: Yes (Life-Threatening, Other)
  Sender: FDA-Public Use
  Company Number: US-BAYER-2014-082176

PATIENT
  Age: 30 Year
  Sex: Female
  Weight: 92 kg

DRUGS (5)
  1. BAYER GENUINE ASPIRIN [Suspect]
     Active Substance: ASPIRIN
     Indication: OROPHARYNGEAL PAIN
     Dosage: 2 DF, EVERY 4 TO 6 HOURS
     Route: 048
     Dates: start: 1964, end: 1964
  2. VITAMIN C [Concomitant]
     Active Substance: ASCORBIC ACID
  3. LEVOTHYROXINE [Concomitant]
     Active Substance: LEVOTHYROXINE
     Indication: HYPOTHYROIDISM
     Dosage: 125 ?G, UNK
  4. LASIX [Concomitant]
     Active Substance: FUROSEMIDE
     Indication: FLUID RETENTION
  5. PENICILLIN NOS [Suspect]
     Active Substance: PENICILLIN
     Indication: PHARYNGITIS STREPTOCOCCAL

REACTIONS (7)
  - Swelling face [Recovered/Resolved]
  - Heart rate increased [Recovered/Resolved]
  - Eyelid oedema [Recovered/Resolved]
  - Drug hypersensitivity [Recovered/Resolved]
  - Dyspnoea [Recovered/Resolved]
  - Swollen tongue [Recovered/Resolved]
  - Aphasia [Recovered/Resolved]

NARRATIVE: CASE EVENT DATE: 19640403
